FAERS Safety Report 25461212 (Version 1)
Quarter: 2025Q2

REPORT INFORMATION
  Report Type: Spontaneous
  Country: US (occurrence: None)
  Receive Date: 20250618
  Receipt Date: 20250618
  Transmission Date: 20250717
  Serious: Yes (Hospitalization, Other)
  Sender: FDA-CTU
  Company Number: None

PATIENT
  Age: 46 Year
  Sex: Male
  Weight: 122.85 kg

DRUGS (12)
  1. OZEMPIC [Suspect]
     Active Substance: SEMAGLUTIDE
     Indication: Type 2 diabetes mellitus
     Route: 030
     Dates: start: 20241129, end: 20250324
  2. OLANZAPINE [Concomitant]
     Active Substance: OLANZAPINE
  3. ROSUVASTATIN [Concomitant]
     Active Substance: ROSUVASTATIN
  4. Clomiphene Cit 50mg [Concomitant]
  5. GLIMEPIRIDE [Concomitant]
     Active Substance: GLIMEPIRIDE
  6. JARDIANCE [Concomitant]
     Active Substance: EMPAGLIFLOZIN
  7. CIMZIA [Concomitant]
     Active Substance: CERTOLIZUMAB PEGOL
  8. EZETIMIBE [Concomitant]
     Active Substance: EZETIMIBE
  9. TRINTELLIX [Concomitant]
     Active Substance: VORTIOXETINE HYDROBROMIDE
  10. Auveliry 45mg/105mg [Concomitant]
  11. FISH OIL [Concomitant]
     Active Substance: FISH OIL
  12. VITAMIN D3 [Concomitant]
     Active Substance: CHOLECALCIFEROL

REACTIONS (5)
  - Mania [None]
  - Bipolar disorder [None]
  - Depression [None]
  - Decreased appetite [None]
  - Abnormal loss of weight [None]

NARRATIVE: CASE EVENT DATE: 20250312
